FAERS Safety Report 9504567 (Version 2)
Quarter: 2013Q3

REPORT INFORMATION
  Report Type: Report from Study
  Country: JP (occurrence: JP)
  Receive Date: 20130906
  Receipt Date: 20130906
  Transmission Date: 20140515
  Serious: Yes (Other)
  Sender: FDA-Public Use
  Company Number: JP-TAKEDA-TCI2013A04722

PATIENT
  Sex: Female
  Weight: 61 kg

DRUGS (19)
  1. PIOGLITAZONE [Suspect]
     Indication: TYPE 2 DIABETES MELLITUS
     Route: 048
     Dates: start: 20120411
  2. LANTUS [Concomitant]
     Indication: TYPE 2 DIABETES MELLITUS
     Route: 058
     Dates: start: 20111220, end: 20120123
  3. LANTUS [Concomitant]
     Route: 058
     Dates: start: 20120124, end: 20120611
  4. LANTUS [Concomitant]
     Route: 058
     Dates: start: 20120612, end: 20120709
  5. LANTUS [Concomitant]
     Route: 058
  6. LANTUS [Concomitant]
     Route: 058
     Dates: start: 20120710
  7. APIDRA [Concomitant]
     Indication: TYPE 2 DIABETES MELLITUS
     Route: 058
     Dates: start: 20120124, end: 20120410
  8. APIDRA [Concomitant]
     Route: 058
     Dates: start: 20120411, end: 20120508
  9. APIDRA [Concomitant]
     Route: 058
  10. APIDRA [Concomitant]
     Route: 058
     Dates: start: 20120509
  11. AMARYL [Concomitant]
     Route: 048
     Dates: start: 20111220
  12. LIVALO [Concomitant]
     Route: 048
  13. LIVALO [Concomitant]
     Route: 048
  14. ZETIA [Concomitant]
     Route: 048
  15. ZETIA [Concomitant]
     Route: 048
  16. DIOVAN [Concomitant]
     Route: 048
  17. DIOVAN [Concomitant]
     Route: 048
  18. BAYASPIRIN [Concomitant]
     Indication: PRODUCT USED FOR UNKNOWN INDICATION
     Route: 048
  19. BAYASPIRIN [Concomitant]
     Route: 048

REACTIONS (2)
  - Ankle fracture [Recovered/Resolved]
  - Fall [Recovered/Resolved]
